FAERS Safety Report 7666014-3 (Version None)
Quarter: 2011Q3

REPORT INFORMATION
  Report Type: 
  Country: None (occurrence: None)
  Receive Date: 20110806
  Receipt Date: 20110526
  Transmission Date: 20111222
  Serious: No
  Sender: FDA-Public Use
  Company Number: US-ABBOTT-11P-163-0728558-00

PATIENT
  Sex: Male
  Weight: 96.248 kg

DRUGS (2)
  1. UNKNOWN MEDICATION WITH HCTZ [Concomitant]
     Indication: BLOOD PRESSURE
  2. NIASPAN [Suspect]
     Indication: PRODUCT USED FOR UNKNOWN INDICATION
     Dosage: AT BEDTIME
     Dates: start: 20100701

REACTIONS (2)
  - FLUSHING [None]
  - SKIN BURNING SENSATION [None]
